FAERS Safety Report 8572695-2 (Version None)
Quarter: 2012Q3

REPORT INFORMATION
  Report Type: 
  Country: None (occurrence: None)
  Receive Date: 20120806
  Receipt Date: 20120801
  Transmission Date: 20120928
  Serious: Yes (Hospitalization)
  Sender: FDA-Public Use
  Company Number: BE-PFIZER INC-2012188268

PATIENT
  Age: 61 Year
  Sex: Male
  Weight: 108 kg

DRUGS (6)
  1. ESTULIC [Concomitant]
     Indication: HYPERTENSION
     Dosage: UNK
     Dates: start: 19990301
  2. GENOTROPIN [Suspect]
     Dosage: 0.2 MG, 1XDAY, 7INJECTIONS/WEEK
     Route: 058
     Dates: start: 20020603
  3. PLENDIL [Concomitant]
     Indication: HYPERTENSION
     Dosage: UNK
     Dates: start: 19990301
  4. VITAMIN D [Concomitant]
     Indication: HYPOPARATHYROIDISM
     Dosage: UNK
     Dates: start: 19640101
  5. LEVOTHYROXINE [Concomitant]
     Indication: BLOOD THYROID STIMULATING HORMONE DECREASED
     Dosage: UNK
     Dates: start: 19640101
  6. IRBESARTAN [Concomitant]
     Indication: HYPERTENSION
     Dosage: UNK
     Dates: start: 19990301

REACTIONS (1)
  - NEUROLOGICAL DECOMPENSATION [None]
